FAERS Safety Report 10636282 (Version 2)
Quarter: 2015Q1

REPORT INFORMATION
  Report Type: Spontaneous
  Country: FR (occurrence: FR)
  Receive Date: 20141206
  Receipt Date: 20150112
  Transmission Date: 20150720
  Serious: Yes (Other)
  Sender: FDA-Public Use
  Company Number: FR-ROCHE-1500199

PATIENT
  Age: 54 Year
  Sex: Female
  Weight: 50 kg

DRUGS (3)
  1. TYVERB [Concomitant]
     Active Substance: LAPATINIB
     Route: 048
     Dates: start: 20141013
  2. XELODA [Suspect]
     Active Substance: CAPECITABINE
     Indication: BREAST CANCER METASTATIC
     Route: 048
  3. XELODA [Suspect]
     Active Substance: CAPECITABINE
     Indication: HEPATIC NEOPLASM
     Route: 065
     Dates: start: 20141013, end: 20141116

REACTIONS (5)
  - Rhinorrhoea [Not Recovered/Not Resolved]
  - Epistaxis [Not Recovered/Not Resolved]
  - Palmar-plantar erythrodysaesthesia syndrome [Recovering/Resolving]
  - Paronychia [Recovering/Resolving]
  - Eye disorder [Not Recovered/Not Resolved]
